FAERS Safety Report 19576824 (Version 1)
Quarter: 2021Q3

REPORT INFORMATION
  Report Type: Spontaneous
  Country: US (occurrence: US)
  Receive Date: 20210719
  Receipt Date: 20210719
  Transmission Date: 20211014
  Serious: Yes (Death)
  Sender: FDA-Public Use
  Company Number: US-ROCHE-2812756

PATIENT
  Sex: Female

DRUGS (2)
  1. XELODA [Suspect]
     Active Substance: CAPECITABINE
     Indication: PRODUCT USED FOR UNKNOWN INDICATION
     Route: 048
     Dates: start: 20210329
  2. TUKYSA [Suspect]
     Active Substance: TUCATINIB
     Indication: BREAST CANCER FEMALE
     Route: 065
     Dates: start: 20210329

REACTIONS (3)
  - Decreased appetite [Unknown]
  - Death [Fatal]
  - Fatigue [Unknown]
